FAERS Safety Report 5074261-2 (Version None)
Quarter: 2006Q3

REPORT INFORMATION
  Report Type: 
  Country: None (occurrence: None)
  Receive Date: 20060714
  Receipt Date: 20060430
  Transmission Date: 20061208
  Serious: No
  Sender: FDA-Public Use
  Company Number: 2006SP001904

PATIENT
  Age: 80 Year
  Sex: Female
  Weight: 58.0604 kg

DRUGS (5)
  1. LUNESTA [Suspect]
     Dosage: 3 MG; 1X; ORAL; SEE IMAGE
     Route: 048
     Dates: start: 20060401, end: 20060401
  2. LUNESTA [Suspect]
     Dosage: 3 MG; 1X; ORAL; SEE IMAGE
     Route: 048
     Dates: start: 20060506, end: 20060506
  3. TEMAZEPAM [Concomitant]
  4. SIMVASTATIN [Concomitant]
  5. ZOLOFT [Concomitant]

REACTIONS (1)
  - MIDDLE INSOMNIA [None]
